FAERS Safety Report 8453642-0 (Version None)
Quarter: 2012Q2

REPORT INFORMATION
  Report Type: 
  Country: None (occurrence: None)
  Receive Date: 20120620
  Receipt Date: 20120615
  Transmission Date: 20120825
  Serious: Yes (Death)
  Sender: FDA-Public Use
  Company Number: DE-BRISTOL-MYERS SQUIBB COMPANY-16546749

PATIENT
  Age: 48 Year
  Sex: Female
  Weight: 81 kg

DRUGS (10)
  1. ABILIFY [Suspect]
     Indication: HALLUCINATION, AUDITORY
     Dosage: 5MG
     Route: 048
     Dates: start: 20111104
  2. PIPAMPERONE [Suspect]
     Indication: SCHIZOAFFECTIVE DISORDER
     Route: 048
     Dates: start: 20110725
  3. ACETYLSALICYLIC ACID SRT [Concomitant]
  4. ABILIFY [Suspect]
     Indication: SCHIZOAFFECTIVE DISORDER
     Dosage: 5MG
     Route: 048
     Dates: start: 20111104
  5. SPIRONOLACTONE [Concomitant]
  6. PLAVIX [Concomitant]
     Dosage: 75 UNITS NOS
  7. RAMIPRIL [Concomitant]
     Dosage: RAMIPRIL 2.5 COMP
  8. BISOPROLOL FUMARATE [Concomitant]
     Dosage: 5 UNITS NOS
  9. SERTRALINE HYDROCHLORIDE [Suspect]
     Indication: SCHIZOAFFECTIVE DISORDER
     Dosage: SERTRALINE TABS
     Route: 048
     Dates: start: 20110725
  10. SIMVASTATIN [Concomitant]

REACTIONS (1)
  - SUDDEN DEATH [None]
